FAERS Safety Report 7179033-0 (Version None)
Quarter: 2010Q4

REPORT INFORMATION
  Report Type: 
  Country: None (occurrence: None)
  Receive Date: 20101221
  Receipt Date: 20101209
  Transmission Date: 20110411
  Serious: Yes (Other)
  Sender: FDA-Public Use
  Company Number: CH-ELI_LILLY_AND_COMPANY-CH201012002743

PATIENT
  Age: 43 Year
  Sex: Female

DRUGS (9)
  1. CYMBALTA [Suspect]
     Indication: DEPRESSION
     Dosage: 30 MG, 2/D
     Dates: end: 20100910
  2. ASPIRIN [Concomitant]
     Dosage: UNK, UNKNOWN
  3. DAFLON [Concomitant]
     Dosage: 500 MG, DAILY (1/D)
  4. IMODIUM [Concomitant]
     Dosage: 25 MG, UNKNOWN
  5. SINUPRET                           /00578801/ [Concomitant]
     Dosage: UNK UNK, DAILY (1/D)
  6. SOMNIUM [Concomitant]
     Dosage: 1 MG, DAILY (1/D)
     Dates: end: 20100910
  7. TEMESTA [Concomitant]
     Dosage: MG, UNK
     Dates: end: 20100909
  8. TEMESTA [Concomitant]
     Dosage: 2.5 MG, DAILY (1/D)
  9. BETNOVATE [Concomitant]

REACTIONS (2)
  - ABORTION SPONTANEOUS [None]
  - DRUG EXPOSURE DURING PREGNANCY [None]
